FAERS Safety Report 18463649 (Version 1)
Quarter: 2020Q4

REPORT INFORMATION
  Report Type: Spontaneous
  Country: IT (occurrence: IT)
  Receive Date: 20201104
  Receipt Date: 20201104
  Transmission Date: 20210114
  Serious: Yes (Death, Life-Threatening, Other)
  Sender: FDA-Public Use
  Company Number: IT-AMGEN-ITASP2020175683

PATIENT

DRUGS (6)
  1. BLINATUMOMAB [Suspect]
     Active Substance: BLINATUMOMAB
     Dosage: UNK
     Route: 065
  2. DEXAMETHASONE. [Concomitant]
     Active Substance: DEXAMETHASONE
     Dosage: 20 MILLIGRAM
  3. LEVETIRACETAM. [Concomitant]
     Active Substance: LEVETIRACETAM
     Dosage: 500 MILLIGRAM, BID
  4. PONATINIB [Concomitant]
     Active Substance: PONATINIB
  5. DASATINIB. [Concomitant]
     Active Substance: DASATINIB
     Dosage: 140 MILLIGRAM, QD
  6. BLINATUMOMAB [Suspect]
     Active Substance: BLINATUMOMAB
     Indication: B PRECURSOR TYPE ACUTE LEUKAEMIA
     Dosage: 28 MICROGRAM, QD
     Route: 065

REACTIONS (37)
  - Venoocclusive disease [Fatal]
  - Rash maculovesicular [Unknown]
  - Haemorrhage intracranial [Recovered/Resolved]
  - Neutropenia [Unknown]
  - Central nervous system leukaemia [Unknown]
  - Neurotoxicity [Recovered/Resolved]
  - Infection [Unknown]
  - Testicular pain [Unknown]
  - Gamma-glutamyltransferase increased [Unknown]
  - Pulmonary arterial hypertension [Unknown]
  - Cytomegalovirus infection [Unknown]
  - Testicular oedema [Unknown]
  - Nervous system disorder [Recovered/Resolved]
  - Vomiting [Unknown]
  - Oedema peripheral [Unknown]
  - Transplantation complication [Fatal]
  - Pleural effusion [Unknown]
  - Chronic graft versus host disease [Unknown]
  - Leukaemic infiltration extramedullary [Unknown]
  - Confusional state [Recovered/Resolved]
  - Aphasia [Recovered/Resolved]
  - Pyrexia [Unknown]
  - Hypoxia [Unknown]
  - Atrial fibrillation [Unknown]
  - Diarrhoea [Unknown]
  - Drug ineffective [Unknown]
  - Tremor [Recovered/Resolved]
  - Acute lymphocytic leukaemia recurrent [Fatal]
  - Acute graft versus host disease [Unknown]
  - Cytomegalovirus viraemia [Unknown]
  - Hepatic function abnormal [Unknown]
  - Bradyphrenia [Recovered/Resolved]
  - Alanine aminotransferase increased [Unknown]
  - Hypogammaglobulinaemia [Unknown]
  - Asthenia [Unknown]
  - Infusion related reaction [Unknown]
  - Anaemia [Unknown]
